FAERS Safety Report 7712423-3 (Version None)
Quarter: 2011Q3

REPORT INFORMATION
  Report Type: 
  Country: None (occurrence: None)
  Receive Date: 20110826
  Receipt Date: 20110823
  Transmission Date: 20111222
  Serious: Yes (Other)
  Sender: FDA-Public Use
  Company Number: IT-PFIZER INC-2011197502

PATIENT
  Age: 72 Year
  Sex: Male

DRUGS (8)
  1. NORVASC [Concomitant]
  2. CORDARONE [Suspect]
     Indication: ATRIAL FLUTTER
     Dosage: 200 MG, DAILY
     Route: 048
  3. CARVEDILOL [Concomitant]
  4. ALLOPURINOL [Concomitant]
  5. GLUCOPHAGE [Concomitant]
  6. ASPIRIN [Concomitant]
  7. KARVEA [Concomitant]
  8. OMEPRAZOLE [Concomitant]

REACTIONS (3)
  - VOMITING [None]
  - NAUSEA [None]
  - LUNG INFECTION [None]
